FAERS Safety Report 24425644 (Version 1)
Quarter: 2024Q4

REPORT INFORMATION
  Report Type: Spontaneous
  Country: JP (occurrence: JP)
  Receive Date: 20241011
  Receipt Date: 20241011
  Transmission Date: 20250115
  Serious: Yes (Death, Other)
  Sender: CITIUS PHARMACEUTICALS
  Company Number: JP-CITIUS PHARMACEUTICALS, INC.-2024CTS000023

PATIENT

DRUGS (1)
  1. DENILEUKIN DIFTITOX [Suspect]
     Active Substance: DENILEUKIN DIFTITOX
     Indication: Cutaneous T-cell lymphoma
     Dosage: 9 MCG/KG/ DAY INTRAVENOUS DRIP INFUSION, CYCLE 1
     Route: 041
     Dates: start: 20240708, end: 20240712

REACTIONS (5)
  - General physical health deterioration [Fatal]
  - Capillary leak syndrome [Unknown]
  - Malignant neoplasm progression [Unknown]
  - Pleural effusion [Unknown]
  - Blood albumin decreased [Unknown]

NARRATIVE: CASE EVENT DATE: 20240101
